FAERS Safety Report 25041503 (Version 6)
Quarter: 2025Q2

REPORT INFORMATION
  Report Type: Report from Study
  Country: CA (occurrence: CA)
  Receive Date: 20250305
  Receipt Date: 20250528
  Transmission Date: 20250717
  Serious: Yes (Other)
  Sender: TAKEDA
  Company Number: CA-TAKEDA-2025TUS020864

PATIENT
  Sex: Male

DRUGS (2)
  1. VEDOLIZUMAB [Suspect]
     Active Substance: VEDOLIZUMAB
     Indication: Crohn^s disease
  2. VEDOLIZUMAB [Suspect]
     Active Substance: VEDOLIZUMAB
     Dosage: 300 MILLIGRAM, Q4WEEKS

REACTIONS (9)
  - Crohn^s disease [Unknown]
  - Loss of therapeutic response [Not Recovered/Not Resolved]
  - Haemoglobin decreased [Unknown]
  - Migraine [Unknown]
  - Productive cough [Unknown]
  - Feeling abnormal [Recovering/Resolving]
  - Pharyngitis [Recovered/Resolved]
  - Cough [Unknown]
  - Nasopharyngitis [Recovering/Resolving]
